FAERS Safety Report 7536269-4 (Version None)
Quarter: 2011Q2

REPORT INFORMATION
  Report Type: 
  Country: None (occurrence: None)
  Receive Date: 20110609
  Receipt Date: 20110601
  Transmission Date: 20111010
  Serious: Yes (Hospitalization)
  Sender: FDA-Public Use
  Company Number: JP-ASTRAZENECA-2011SE33513

PATIENT
  Age: 81 Year
  Sex: Female

DRUGS (12)
  1. CANDESARTAN CILEXETIL [Suspect]
     Indication: HYPERTENSION
     Route: 048
     Dates: start: 20081009, end: 20110218
  2. NIVADIL [Concomitant]
     Route: 048
  3. LUDIOMIL [Concomitant]
     Route: 048
  4. ALFAROL [Concomitant]
     Route: 048
  5. BUFFERIN [Concomitant]
     Route: 048
  6. PURSENNID [Concomitant]
     Route: 048
  7. GASMOTIN [Concomitant]
     Route: 048
  8. DOGMATYL [Concomitant]
     Route: 048
  9. PREDNISOLONE [Concomitant]
     Route: 048
  10. CLARITHROMYCIN [Concomitant]
     Route: 048
  11. RHYTHMY [Concomitant]
     Route: 048
  12. LANSOPRAZOLE [Concomitant]
     Route: 048

REACTIONS (4)
  - FALL [None]
  - URINARY TRACT INFECTION [None]
  - RHABDOMYOLYSIS [None]
  - SUBDURAL HAEMATOMA [None]
